FAERS Safety Report 9048467 (Version 1)
Quarter: 2013Q1

REPORT INFORMATION
  Report Type: Spontaneous
  Country: US (occurrence: US)
  Receive Date: 20130204
  Receipt Date: 20130204
  Transmission Date: 20140127
  Serious: No
  Sender: FDA-Public Use
  Company Number: US-AMGEN-USASP2013000934

PATIENT
  Age: 68 Year
  Sex: Female

DRUGS (2)
  1. ENBREL [Suspect]
     Indication: RHEUMATOID ARTHRITIS
     Dosage: 50 MG, QWK
     Dates: start: 20120924
  2. METHOTREXATE [Suspect]
     Dosage: 2.5 MG, QWK,  7 TABLETS
     Route: 048
     Dates: start: 201206

REACTIONS (1)
  - Alopecia [Not Recovered/Not Resolved]
